FAERS Safety Report 19885354 (Version 1)
Quarter: 2021Q3

REPORT INFORMATION
  Report Type: Spontaneous
  Country: NL (occurrence: NL)
  Receive Date: 20210927
  Receipt Date: 20210927
  Transmission Date: 20211014
  Serious: Yes (Other)
  Sender: FDA-Public Use
  Company Number: NL-TEVA-2021-NL-1956459

PATIENT
  Sex: Female
  Weight: 76.8 kg

DRUGS (7)
  1. CANNABIS [Concomitant]
     Active Substance: CANNABIS SATIVA SUBSP. INDICA TOP
     Dosage: CBD/THC OIL ,THERAPY START DATE :ASKU,THERAPY END DATE :ASKU
  2. CARBASALAATCALCIUM POEDER 100MG / BRAND NAME NOT SPECIFIED [Concomitant]
     Dosage: SACHET (POWDER), 100 MG (MILLIGRAMS),THERAPY START DATE :ASKU,THERAPY END DATE :ASKU
  3. RISEDRONINEZUUR TABLET FO 35MG / BRAND NAME NOT SPECIFIED [Concomitant]
     Dosage: 35 MG (MILLIGRAM),THERAPY START DATE :ASKU,THERAPY END DATE :ASKU
  4. CALCIUMCARB/COLECALC KAUWTB 2,5G/800IE (1000MG CA) / CALCI CHEW D3 KAU [Concomitant]
     Active Substance: CALCIUM CARBONATE\CHOLECALCIFEROL
     Dosage: UNIT DOSE :1 DOSAGE FORMS ,2.5 G (GRAMS)/800 UNITS,THERAPY START DATE :ASKU,THERAPY END DATE :ASKU
  5. IBRANCE [Suspect]
     Active Substance: PALBOCICLIB
     Indication: BREAST CANCER
     Dosage: UNIT DOSE :125 MG ,THERAPY END DATE :ASKU ,1D1T FOR 3 WEEKS AND 1 WEEK STOP
     Dates: start: 20210708
  6. LEVETIRACETAM TABLET FO  500MG / BRAND NAME NOT SPECIFIED [Concomitant]
     Active Substance: LEVETIRACETAM
     Dosage: 500 MG (MILLIGRAM),THERAPY START DATE :ASKU,THERAPY END DATE :ASKU
  7. FULVESTRANT INJVLST 50MG/ML / BRAND NAME NOT SPECIFIED [Suspect]
     Active Substance: FULVESTRANT
     Indication: BREAST CANCER
     Dosage: UNIT DOSE :1 DOSAGE FORMS ,THERAPY END DATE :ASKU ,2 INJECTIONS EVERY 4 WEEKS, START OF TREATMENT ON
     Dates: start: 20210707

REACTIONS (1)
  - Depressed level of consciousness [Recovering/Resolving]
